FAERS Safety Report 10136783 (Version 1)
Quarter: 2014Q2

REPORT INFORMATION
  Report Type: Spontaneous
  Country: US (occurrence: US)
  Receive Date: 20140429
  Receipt Date: 20140429
  Transmission Date: 20141212
  Serious: No
  Sender: FDA-Public Use
  Company Number: US-MYLANLABS-2013S1022240

PATIENT
  Age: 74 Year
  Sex: Female

DRUGS (4)
  1. IPRATROPIUM BROMIDE AND ALBUTEROL SULFATE INHALATION SOLUTION [Suspect]
     Indication: ASTHMA
     Route: 055
     Dates: start: 20131001
  2. IPRATROPIUM BROMIDE AND ALBUTEROL SULFATE INHALATION SOLUTION [Suspect]
     Indication: OFF LABEL USE
     Route: 055
     Dates: start: 20131001
  3. ERYTHROMYCIN [Concomitant]
     Route: 048
  4. DILTIAZEM [Concomitant]
     Indication: BLOOD PRESSURE INCREASED
     Route: 048

REACTIONS (1)
  - Abdominal discomfort [Not Recovered/Not Resolved]
